FAERS Safety Report 23259672 (Version 1)
Quarter: 2023Q4

REPORT INFORMATION
  Report Type: Spontaneous
  Country: CN (occurrence: CN)
  Receive Date: 20231204
  Receipt Date: 20231204
  Transmission Date: 20240110
  Serious: Yes (Other)
  Sender: FDA-Public Use
  Company Number: CN-PFIZER INC-PV202300193817

PATIENT
  Age: 42 Year
  Sex: Female

DRUGS (1)
  1. AZITHROMYCIN [Suspect]
     Active Substance: AZITHROMYCIN
     Indication: Antiinflammatory therapy
     Dosage: 0.1 G, 1X/DAY
     Route: 048
     Dates: start: 20231119, end: 20231119

REACTIONS (6)
  - Hypersensitivity [Recovering/Resolving]
  - Rash erythematous [Recovering/Resolving]
  - Pruritus [Recovering/Resolving]
  - Discomfort [Recovering/Resolving]
  - Prescription drug used without a prescription [Unknown]
  - Off label use [Unknown]

NARRATIVE: CASE EVENT DATE: 20231101
